FAERS Safety Report 9495055 (Version 2)
Quarter: 2013Q3

REPORT INFORMATION
  Report Type: Report from Study
  Country: AR (occurrence: AR)
  Receive Date: 20130903
  Receipt Date: 20130906
  Transmission Date: 20140515
  Serious: Yes (Hospitalization, Other)
  Sender: FDA-Public Use
  Company Number: AR-ROCHE-1269343

PATIENT
  Sex: Female

DRUGS (1)
  1. RANIBIZUMAB [Suspect]
     Indication: RETINAL DISORDER
     Dosage: DOSE: 0.5 MG AMPOULE.
     Route: 050
     Dates: start: 2008

REACTIONS (5)
  - Cardiac failure [Recovering/Resolving]
  - Pneumonia [Recovering/Resolving]
  - Animal bite [Recovering/Resolving]
  - Infected varicose vein [Recovering/Resolving]
  - Weight decreased [Unknown]
